FAERS Safety Report 23798214 (Version 1)
Quarter: 2024Q2

REPORT INFORMATION
  Report Type: Spontaneous
  Country: IT (occurrence: IT)
  Receive Date: 20240430
  Receipt Date: 20240430
  Transmission Date: 20240716
  Serious: Yes (Hospitalization)
  Sender: FDA-Public Use
  Company Number: None

PATIENT
  Age: 45 Year
  Sex: Female

DRUGS (3)
  1. ARIPIPRAZOLE [Suspect]
     Active Substance: ARIPIPRAZOLE
     Indication: Suicide attempt
     Dosage: 7 TABLETS OF 10MG
     Dates: start: 20240315, end: 20240315
  2. VENLAFAXINE [Suspect]
     Active Substance: VENLAFAXINE HYDROCHLORIDE
     Indication: Suicide attempt
     Dosage: 14 TABLETS OF 75MG
     Dates: start: 20240315, end: 20240315
  3. LYRICA [Suspect]
     Active Substance: PREGABALIN
     Indication: Suicide attempt
     Dosage: 15 TABLETS OF 75MG
     Dates: start: 20240315, end: 20240315

REACTIONS (3)
  - Drug abuse [Unknown]
  - Sopor [Recovered/Resolved]
  - Rhabdomyolysis [Unknown]

NARRATIVE: CASE EVENT DATE: 20240316
